FAERS Safety Report 10174136 (Version 1)
Quarter: 2014Q2

REPORT INFORMATION
  Report Type: Spontaneous
  Country: US (occurrence: None)
  Receive Date: 20140514
  Receipt Date: 20140514
  Transmission Date: 20141212
  Serious: No
  Sender: FDA-Public Use
  Company Number: None

PATIENT
  Age: 33 Year
  Sex: Male
  Weight: 99.79 kg

DRUGS (1)
  1. CYMBALTA [Suspect]
     Indication: DEPRESSION
     Dosage: 1, TWICE DAILY, TAKEN BY MOUTH
     Route: 048

REACTIONS (3)
  - Feeling abnormal [None]
  - Panic attack [None]
  - Drug effect incomplete [None]
